FAERS Safety Report 15589339 (Version 1)
Quarter: 2018Q4

REPORT INFORMATION
  Report Type: Spontaneous
  Country: US (occurrence: US)
  Receive Date: 20181106
  Receipt Date: 20181106
  Transmission Date: 20190205
  Serious: No
  Sender: FDA-Public Use
  Company Number: US-ASTRAZENECA-2018SF44680

PATIENT
  Sex: Female

DRUGS (2)
  1. ADVIL [Concomitant]
     Active Substance: IBUPROFEN
     Dosage: 2 ADVIL EVERY 4HR
     Route: 048
  2. PRILOSEC OTC [Suspect]
     Active Substance: OMEPRAZOLE MAGNESIUM
     Indication: PROPHYLAXIS
     Dosage: TAKEN 7 TABLETS OVER THE LAST 24 HOURS
     Route: 048
     Dates: start: 20181017, end: 20181018

REACTIONS (4)
  - Inappropriate schedule of product administration [Unknown]
  - Accidental overdose [Unknown]
  - Abdominal pain upper [Not Recovered/Not Resolved]
  - Product use in unapproved indication [Unknown]

NARRATIVE: CASE EVENT DATE: 20181018
